FAERS Safety Report 4727809-9 (Version None)
Quarter: 2005Q3

REPORT INFORMATION
  Report Type: 
  Country: None (occurrence: None)
  Receive Date: 20050727
  Receipt Date: 20050721
  Transmission Date: 20060218
  Serious: Yes (Death)
  Sender: FDA-Public Use
  Company Number: A-CH2005-10182

PATIENT
  Age: 7 Month
  Sex: Male

DRUGS (6)
  1. TRACLEER [Suspect]
     Indication: PULMONARY HYPERTENSION
     Dosage: 16 MG, OD, ORAL
     Route: 048
     Dates: start: 20050605, end: 20050712
  2. SILDENAFIL (SILDENAFIL) [Concomitant]
  3. ILOMEDIN (ILOPROST) [Concomitant]
  4. PREDNISONE TAB [Concomitant]
  5. THEOPHYLLINE [Concomitant]
  6. CORTICOSTEROIDS [Concomitant]

REACTIONS (2)
  - OFF LABEL USE [None]
  - RESPIRATORY FAILURE [None]
